FAERS Safety Report 23693560 (Version 1)
Quarter: 2024Q2

REPORT INFORMATION
  Report Type: Spontaneous
  Country: FR (occurrence: FR)
  Receive Date: 20240401
  Receipt Date: 20240401
  Transmission Date: 20240716
  Serious: Yes (Other)
  Sender: FDA-Public Use
  Company Number: FR-BIOGARAN-B24000462

PATIENT
  Sex: Female

DRUGS (3)
  1. FLUOXETINE HYDROCHLORIDE [Interacting]
     Active Substance: FLUOXETINE HYDROCHLORIDE
     Indication: Product used for unknown indication
     Dosage: UNK UNK, UNKNOWN
     Route: 065
  2. FESOTERODINE FUMARATE [Interacting]
     Active Substance: FESOTERODINE FUMARATE
     Indication: Stress urinary incontinence
     Dosage: UNK UNK, UNKNOWN
     Route: 065
     Dates: start: 20240221, end: 20240227
  3. IRBESARTAN [Concomitant]
     Active Substance: IRBESARTAN
     Indication: Product used for unknown indication
     Dosage: UNK
     Route: 065

REACTIONS (24)
  - Urinary retention [Recovering/Resolving]
  - Dry eye [Recovering/Resolving]
  - Cough [Recovering/Resolving]
  - Nasal dryness [Recovering/Resolving]
  - Gastrointestinal motility disorder [Recovering/Resolving]
  - Abdominal pain upper [Recovering/Resolving]
  - Abdominal discomfort [Recovering/Resolving]
  - Vertigo [Recovering/Resolving]
  - Eructation [Recovering/Resolving]
  - Flatulence [Recovering/Resolving]
  - Oropharyngeal pain [Recovering/Resolving]
  - Ageusia [Recovering/Resolving]
  - Drug interaction [Unknown]
  - Nausea [Recovering/Resolving]
  - Headache [Recovering/Resolving]
  - Gingival swelling [Recovering/Resolving]
  - Pruritus [Recovering/Resolving]
  - Gingival bleeding [Recovering/Resolving]
  - Dysuria [Recovering/Resolving]
  - Dysgeusia [Recovering/Resolving]
  - Fatigue [Recovering/Resolving]
  - Sleep disorder [Recovering/Resolving]
  - Dry throat [Recovering/Resolving]
  - Palpitations [Recovering/Resolving]
